FAERS Safety Report 8951406 (Version 1)
Quarter: 2012Q4

REPORT INFORMATION
  Report Type: Spontaneous
  Country: DE (occurrence: None)
  Receive Date: 20121129
  Receipt Date: 20121129
  Transmission Date: 20130627
  Serious: Yes (Other)
  Sender: FDA-Public Use
  Company Number: GER/GER/12/0026809

PATIENT
  Sex: Male

DRUGS (1)
  1. FINASTERIDE (FINASTERIDE) [Suspect]
     Indication: ALOPECIA
     Dosage: 1 mg, 1 in 1 D, Oral
     Route: 048

REACTIONS (6)
  - Arthralgia [None]
  - Depression [None]
  - Myalgia [None]
  - Sleep disorder [None]
  - Erectile dysfunction [None]
  - Genital pain [None]
